FAERS Safety Report 10256596 (Version 1)
Quarter: 2014Q2

REPORT INFORMATION
  Report Type: Spontaneous
  Country: US (occurrence: US)
  Receive Date: 20140624
  Receipt Date: 20140624
  Transmission Date: 20141212
  Serious: Yes (Death, Hospitalization, Other)
  Sender: FDA-Public Use
  Company Number: US-PFIZER INC-2014164136

PATIENT
  Sex: Male

DRUGS (1)
  1. DEPO-TESTOSTERONE [Suspect]
     Dosage: UNK
     Dates: start: 20100603, end: 20110615

REACTIONS (4)
  - Prostate cancer [Fatal]
  - Respiratory failure [Unknown]
  - Ascites [Unknown]
  - Pleural effusion [Unknown]
